FAERS Safety Report 5887873-0 (Version None)
Quarter: 2008Q3

REPORT INFORMATION
  Report Type: 
  Country: None (occurrence: None)
  Receive Date: 20080917
  Receipt Date: 20080917
  Transmission Date: 20090109
  Serious: Yes (Other)
  Sender: FDA-Public Use
  Company Number: None

PATIENT
  Sex: Male
  Weight: 89.54 kg

DRUGS (1)
  1. HALOPERIDOL [Suspect]
     Dosage: 5 MG IV
     Route: 042

REACTIONS (1)
  - TRISMUS [None]
